FAERS Safety Report 20448384 (Version 1)
Quarter: 2022Q1

REPORT INFORMATION
  Report Type: Spontaneous
  Country: DE (occurrence: DE)
  Receive Date: 20220209
  Receipt Date: 20220209
  Transmission Date: 20220423
  Serious: Yes (Other)
  Sender: FDA-Public Use
  Company Number: DE-NOVARTISPH-NVSC2022DE025584

PATIENT
  Sex: Female
  Weight: 2.81 kg

DRUGS (3)
  1. PREDNISOLONE [Suspect]
     Active Substance: PREDNISOLONE
     Indication: Foetal exposure during pregnancy
     Dosage: (MATERNAL DOSE: 5 MG QD ,5 [MG/D ], 0. - 36.5. GESTATIONAL WEEK)
     Route: 064
     Dates: start: 20200415, end: 20201228
  2. HYDROXYCHLOROQUINE [Concomitant]
     Active Substance: HYDROXYCHLOROQUINE
     Indication: Foetal exposure during pregnancy
     Dosage: (MATERNAL DOSE: 200 MG, QD, 200 [MG/D ], 0. - 36.5. GESTATIONAL WEEK)
     Route: 064
     Dates: start: 20200415, end: 20201228
  3. METHOTREXATE [Concomitant]
     Active Substance: METHOTREXATE
     Indication: Foetal exposure during pregnancy
     Dosage: 15 [MG/WK ]/ MTX WAS STOPPED 25 DAYS BEFORE CONCEPTION
     Route: 064

REACTIONS (2)
  - Premature baby [Unknown]
  - Foetal exposure during pregnancy [Unknown]
